FAERS Safety Report 6815584-3 (Version None)
Quarter: 2010Q3

REPORT INFORMATION
  Report Type: 
  Country: None (occurrence: None)
  Receive Date: 20100702
  Receipt Date: 20100630
  Transmission Date: 20110219
  Serious: Yes (Hospitalization)
  Sender: FDA-Public Use
  Company Number: PHHO2010IT06142

PATIENT
  Sex: Male
  Weight: 83.5 kg

DRUGS (7)
  1. CERTICAN [Suspect]
     Indication: RENAL TRANSPLANT
     Dosage: 0.25 MG+0.50 MG
     Route: 048
     Dates: start: 20081115
  2. CERTICAN [Suspect]
     Dosage: 0.5 MG  TWICE DAY
     Route: 048
  3. NEORAL [Suspect]
     Indication: RENAL TRANSPLANT
  4. AMLODIPINE [Suspect]
  5. DILATREND [Concomitant]
  6. LEVOTHYROXINE SODIUM [Concomitant]
  7. CARDURA [Concomitant]

REACTIONS (2)
  - OEDEMA PERIPHERAL [None]
  - URINE OUTPUT DECREASED [None]
